FAERS Safety Report 8196885-6 (Version None)
Quarter: 2012Q1

REPORT INFORMATION
  Report Type: 
  Country: None (occurrence: None)
  Receive Date: 20120309
  Receipt Date: 20120301
  Transmission Date: 20120608
  Serious: Yes (Other)
  Sender: FDA-Public Use
  Company Number: US-BAYER-2011-103472

PATIENT
  Age: 29 Year
  Sex: Female
  Weight: 90.703 kg

DRUGS (5)
  1. CHANTIX [Concomitant]
     Dosage: UNK
     Route: 048
     Dates: start: 20080119
  2. YAZ [Suspect]
     Indication: CONTRACEPTION
     Dosage: UNK
     Dates: start: 20070101, end: 20080101
  3. AMOXICILLIN [Concomitant]
     Dosage: 500 MG, UNK
     Route: 048
     Dates: start: 20080107
  4. HYDROCODONE BITARTRATE AND ACETAMINOPHEN [Concomitant]
  5. METFORMIN HCL [Concomitant]

REACTIONS (6)
  - GALLBLADDER DISORDER [None]
  - PSYCHOLOGICAL TRAUMA [None]
  - PAIN [None]
  - ANXIETY [None]
  - CHOLECYSTITIS CHRONIC [None]
  - EMOTIONAL DISTRESS [None]
